FAERS Safety Report 5121947-7 (Version None)
Quarter: 2006Q4

REPORT INFORMATION
  Report Type: 
  Country: None (occurrence: None)
  Receive Date: 20061003
  Receipt Date: 20060920
  Transmission Date: 20070319
  Serious: Yes (Other)
  Sender: FDA-Public Use
  Company Number: CHNY2006BR02649

PATIENT
  Age: 27 Year
  Sex: Female
  Weight: 64 kg

DRUGS (1)
  1. TONOPAN (NCH)(DIHYDROERGOTAMINE MESILATE, PROPYPHENAZONE, CAFFEINE CIT [Suspect]
     Indication: HEADACHE
     Dosage: 1 DF, ONCE/SINGLE, ORAL
     Route: 048
     Dates: start: 20060920

REACTIONS (6)
  - DYSPNOEA [None]
  - EYE SWELLING [None]
  - NASAL DISCOMFORT [None]
  - OEDEMA MOUTH [None]
  - PRURITUS [None]
  - THROAT IRRITATION [None]
